FAERS Safety Report 15331595 (Version 3)
Quarter: 2018Q4

REPORT INFORMATION
  Report Type: Spontaneous
  Country: US (occurrence: US)
  Receive Date: 20180829
  Receipt Date: 20181206
  Transmission Date: 20190204
  Serious: Yes (Other)
  Sender: FDA-Public Use
  Company Number: PHEH2018US036130

PATIENT
  Sex: Female

DRUGS (2)
  1. ZOFRAN [Suspect]
     Active Substance: ONDANSETRON HYDROCHLORIDE
     Indication: MORNING SICKNESS
     Dosage: 4 MG, BID
     Route: 048
     Dates: end: 20120703
  2. ONDANSETRON DR REDDY [Suspect]
     Active Substance: ONDANSETRON
     Indication: MORNING SICKNESS
     Dosage: 1 DF, Q8H
     Route: 048
     Dates: start: 20120121

REACTIONS (8)
  - Uterine contractions during pregnancy [Unknown]
  - Maternal exposure during pregnancy [Unknown]
  - Urinary tract infection [Unknown]
  - Anaemia [Unknown]
  - Oligohydramnios [Unknown]
  - Product use in unapproved indication [Unknown]
  - Cardiac disorder [Unknown]
  - Hypokalaemia [Unknown]
